FAERS Safety Report 16751206 (Version 1)
Quarter: 2020Q3

REPORT INFORMATION
  Report Type: Spontaneous
  Country: CA (occurrence: CA)
  Receive Date: 20190828
  Receipt Date: 20190828
  Transmission Date: 20201104
  Serious: Yes (Other)
  Sender: FDA-Public Use
  Company Number: CA-BAXTER-2019BAX016552

PATIENT
  Age: 28 Year
  Sex: Male

DRUGS (20)
  1. PROCYTOX (CYCLOPHOSPHAMIDE) 2000MG/VIAL [Suspect]
     Active Substance: CYCLOPHOSPHAMIDE
     Indication: METASTASES TO LUNG
  2. DACARBAZINE. [Suspect]
     Active Substance: DACARBAZINE
     Indication: PARAGANGLION NEOPLASM
     Route: 065
     Dates: end: 2013
  3. DACARBAZINE. [Suspect]
     Active Substance: DACARBAZINE
     Indication: METASTASES TO BONE
  4. VINCRISTINE [Suspect]
     Active Substance: VINCRISTINE
     Indication: METASTASES TO LIVER
  5. DACARBAZINE. [Suspect]
     Active Substance: DACARBAZINE
     Indication: METASTASES TO LIVER
  6. EDOTREOTIDE LUTETIUM LU?177. [Suspect]
     Active Substance: EDOTREOTIDE LUTETIUM LU-177
     Indication: PARAGANGLION NEOPLASM
     Dosage: ABOUT 2.5 YEARS
     Route: 065
  7. PROCYTOX (CYCLOPHOSPHAMIDE) 2000MG/VIAL [Suspect]
     Active Substance: CYCLOPHOSPHAMIDE
     Indication: METASTASES TO BONE
  8. VINCRISTINE [Suspect]
     Active Substance: VINCRISTINE
     Indication: PARAGANGLION NEOPLASM
     Route: 065
     Dates: end: 2013
  9. SUNITINIB [Suspect]
     Active Substance: SUNITINIB
     Indication: PARAGANGLION NEOPLASM
     Dosage: ABOUT 2 YEARS
     Route: 065
  10. PROCYTOX (CYCLOPHOSPHAMIDE) 2000MG/VIAL [Suspect]
     Active Substance: CYCLOPHOSPHAMIDE
     Indication: PARAGANGLION NEOPLASM
     Route: 065
     Dates: end: 2013
  11. PROCYTOX (CYCLOPHOSPHAMIDE) 2000MG/VIAL [Suspect]
     Active Substance: CYCLOPHOSPHAMIDE
     Indication: METASTASES TO LIVER
  12. DACARBAZINE. [Suspect]
     Active Substance: DACARBAZINE
     Indication: METASTASES TO LUNG
  13. VINCRISTINE [Suspect]
     Active Substance: VINCRISTINE
     Indication: METASTASES TO LUNG
  14. EDOTREOTIDE LUTETIUM LU?177. [Suspect]
     Active Substance: EDOTREOTIDE LUTETIUM LU-177
     Indication: METASTASES TO LUNG
  15. SUNITINIB [Suspect]
     Active Substance: SUNITINIB
     Indication: METASTASES TO LIVER
  16. SUNITINIB [Suspect]
     Active Substance: SUNITINIB
     Indication: METASTASES TO BONE
  17. EDOTREOTIDE LUTETIUM LU?177. [Suspect]
     Active Substance: EDOTREOTIDE LUTETIUM LU-177
     Indication: METASTASES TO BONE
  18. EDOTREOTIDE LUTETIUM LU?177. [Suspect]
     Active Substance: EDOTREOTIDE LUTETIUM LU-177
     Indication: METASTASES TO LIVER
  19. VINCRISTINE [Suspect]
     Active Substance: VINCRISTINE
     Indication: METASTASES TO BONE
  20. SUNITINIB [Suspect]
     Active Substance: SUNITINIB
     Indication: METASTASES TO LUNG

REACTIONS (2)
  - Malignant neoplasm progression [Unknown]
  - Toxicity to various agents [Unknown]
